FAERS Safety Report 25014574 (Version 1)
Quarter: 2025Q1

REPORT INFORMATION
  Report Type: Spontaneous
  Country: BG (occurrence: BG)
  Receive Date: 20250226
  Receipt Date: 20250226
  Transmission Date: 20250409
  Serious: Yes (Other)
  Sender: AMGEN
  Company Number: BG-AMGEN-BGRSP2025032943

PATIENT
  Age: 56 Year
  Sex: Female

DRUGS (2)
  1. PROLIA [Suspect]
     Active Substance: DENOSUMAB
     Indication: Osteoporosis
     Route: 065
  2. CINACALCET HYDROCHLORIDE [Suspect]
     Active Substance: CINACALCET HYDROCHLORIDE
     Indication: Hyperparathyroidism secondary
     Route: 065

REACTIONS (6)
  - Pelvic fracture [Unknown]
  - Lumbar vertebral fracture [Unknown]
  - Parathyroid tumour benign [Unknown]
  - Hyperparathyroidism tertiary [Unknown]
  - Thyroid mass [Unknown]
  - Therapy non-responder [Unknown]
